FAERS Safety Report 8215962-4 (Version None)
Quarter: 2012Q1

REPORT INFORMATION
  Report Type: 
  Country: None (occurrence: None)
  Receive Date: 20120316
  Receipt Date: 20120308
  Transmission Date: 20120608
  Serious: No
  Sender: FDA-Public Use
  Company Number: US-PFIZER INC-2012064911

PATIENT
  Sex: Male

DRUGS (2)
  1. SUDAFED 12 HOUR [Suspect]
     Dosage: UNK
  2. ZYVOX [Suspect]
     Dosage: UNK

REACTIONS (3)
  - DECREASED APPETITE [None]
  - DYSGEUSIA [None]
  - NAUSEA [None]
